FAERS Safety Report 7213374-3 (Version None)
Quarter: 2011Q1

REPORT INFORMATION
  Report Type: 
  Country: None (occurrence: None)
  Receive Date: 20110106
  Receipt Date: 20101229
  Transmission Date: 20110831
  Serious: Yes (Hospitalization)
  Sender: FDA-Public Use
  Company Number: DE-GILEAD-E2B_00000965

PATIENT
  Sex: Male
  Weight: 98 kg

DRUGS (8)
  1. CORDANUM [Concomitant]
     Route: 065
  2. JENASPIRON [Concomitant]
     Route: 065
  3. FALITHROM [Concomitant]
     Route: 065
  4. AMBRISENTAN [Suspect]
     Indication: PULMONARY ARTERIAL HYPERTENSION
     Route: 048
     Dates: start: 20100501, end: 20100801
  5. FURANTHRIL [Concomitant]
     Route: 065
  6. ALLOPURINOL [Concomitant]
     Route: 065
  7. LERCANIDIPINE [Concomitant]
     Route: 065
  8. DELIX [Concomitant]
     Route: 065

REACTIONS (4)
  - ATRIAL FIBRILLATION [None]
  - BLOOD CREATININE INCREASED [None]
  - TACHYARRHYTHMIA [None]
  - RENAL FUNCTION TEST ABNORMAL [None]
